FAERS Safety Report 14816991 (Version 1)
Quarter: 2018Q2

REPORT INFORMATION
  Report Type: Spontaneous
  Country: GB (occurrence: GB)
  Receive Date: 20180426
  Receipt Date: 20180426
  Transmission Date: 20180711
  Serious: Yes (Other)
  Sender: FDA-Public Use
  Company Number: GB-MYLANLABS-2018M1027031

PATIENT
  Age: 14 Year
  Sex: Female

DRUGS (2)
  1. XANAX [Suspect]
     Active Substance: ALPRAZOLAM
     Indication: PRODUCT USED FOR UNKNOWN INDICATION
     Dosage: UNK
  2. FENTANYL. [Suspect]
     Active Substance: FENTANYL
     Indication: PRODUCT USED FOR UNKNOWN INDICATION
     Dosage: UNK

REACTIONS (8)
  - Dysarthria [Unknown]
  - Feeling drunk [Unknown]
  - Drug abuse [Unknown]
  - Aggression [Unknown]
  - Amnesia [Unknown]
  - Abnormal behaviour [Unknown]
  - Dependence [Unknown]
  - Gait disturbance [Unknown]
